FAERS Safety Report 14881550 (Version 1)
Quarter: 2018Q2

REPORT INFORMATION
  Report Type: Spontaneous
  Country: CA (occurrence: CA)
  Receive Date: 20180511
  Receipt Date: 20180511
  Transmission Date: 20180711
  Serious: Yes (Disabling, Other)
  Sender: FDA-Public Use
  Company Number: CA-BAYER-2018-084417

PATIENT
  Age: 56 Year
  Sex: Female
  Weight: 83 kg

DRUGS (1)
  1. AVELOX [Suspect]
     Active Substance: MOXIFLOXACIN HYDROCHLORIDE
     Dosage: 400 MG, QD
     Route: 048

REACTIONS (43)
  - Dry skin [None]
  - Fatigue [None]
  - Feeling cold [None]
  - Movement disorder [None]
  - Muscle spasms [None]
  - Visual field defect [None]
  - Abdominal discomfort [Not Recovered/Not Resolved]
  - Disturbance in attention [None]
  - Dizziness [None]
  - Hyperacusis [None]
  - Malaise [None]
  - Nausea [None]
  - Tremor [None]
  - Weight decreased [None]
  - Choking sensation [None]
  - Disorientation [None]
  - Erythema [None]
  - Insomnia [None]
  - Vision blurred [None]
  - Areflexia [None]
  - Balance disorder [None]
  - Burning sensation [None]
  - Constipation [None]
  - Hypohidrosis [None]
  - Lichen planus [None]
  - Migraine [None]
  - Pain in extremity [None]
  - Visual impairment [None]
  - Dyspnoea [None]
  - Fine motor skill dysfunction [None]
  - Alopecia [None]
  - Arthralgia [None]
  - Decreased appetite [None]
  - Gait disturbance [None]
  - Paraesthesia [None]
  - Tinnitus [None]
  - Vaginal discharge [None]
  - Chest pain [None]
  - Muscle atrophy [None]
  - Nail ridging [None]
  - Onychoclasis [None]
  - Hypoaesthesia [None]
  - Sensory loss [None]
